FAERS Safety Report 5345595-9 (Version None)
Quarter: 2007Q2

REPORT INFORMATION
  Report Type: 
  Country: None (occurrence: None)
  Receive Date: 20070605
  Receipt Date: 20070212
  Transmission Date: 20071010
  Serious: No
  Sender: FDA-Public Use
  Company Number: US-ASTRAZENECA-2007UW02850

PATIENT
  Sex: Female
  Weight: 63.5 kg

DRUGS (2)
  1. PRILOSEC [Suspect]
     Indication: GASTRIC PH
     Route: 048
     Dates: start: 20020101
  2. LIPITOR [Concomitant]

REACTIONS (4)
  - ABDOMINAL DISTENSION [None]
  - DYSGEUSIA [None]
  - NAUSEA [None]
  - PHARMACEUTICAL PRODUCT COMPLAINT [None]
